FAERS Safety Report 17039269 (Version 1)
Quarter: 2019Q4

REPORT INFORMATION
  Report Type: Spontaneous
  Country: US (occurrence: US)
  Receive Date: 20191115
  Receipt Date: 20191115
  Transmission Date: 20200122
  Serious: No
  Sender: FDA-Public Use
  Company Number: US-SA-2019SA312426

PATIENT
  Age: 29 Year
  Sex: Female

DRUGS (1)
  1. ADMELOG [Suspect]
     Active Substance: INSULIN LISPRO
     Indication: GESTATIONAL DIABETES
     Dosage: 4 UNITS WITH BREAKFAST, 6 UNITS WITH LUNCH AND 6 UNITS WITH DINNER
     Route: 065
     Dates: start: 20191106

REACTIONS (2)
  - Exposure during pregnancy [Unknown]
  - Product storage error [Unknown]
